FAERS Safety Report 19405156 (Version 1)
Quarter: 2021Q2

REPORT INFORMATION
  Report Type: Spontaneous
  Country: US (occurrence: US)
  Receive Date: 20210611
  Receipt Date: 20210611
  Transmission Date: 20210717
  Serious: Yes (Death)
  Sender: FDA-Public Use
  Company Number: None

PATIENT
  Age: 60 Year
  Sex: Female

DRUGS (15)
  1. FUSION PLUS CAPSULES [Concomitant]
  2. SAMSCA [Suspect]
     Active Substance: TOLVAPTAN
     Indication: HYPONATRAEMIA
     Dosage: ?          OTHER FREQUENCY:EVERY THIRD DAY;?
     Route: 048
     Dates: start: 20210506, end: 20210521
  3. MIRALAX [Concomitant]
     Active Substance: POLYETHYLENE GLYCOL 3350
  4. PULMICORT 90 MCG FLEXHALER [Concomitant]
  5. ALBUTEROL INHALER [Concomitant]
     Active Substance: ALBUTEROL
  6. CENTRUM SILVER TABLETS [Concomitant]
  7. VITAMIN D TABLETS [Concomitant]
     Active Substance: VITAMIN D NOS
  8. METOPROLOL TARTRATE 25MG [Concomitant]
     Active Substance: METOPROLOL TARTRATE
  9. OMEGA CAPSULES [Concomitant]
  10. VORICONAZOLE 200MG [Concomitant]
     Active Substance: VORICONAZOLE
  11. BENADRYL 25MG [Concomitant]
  12. GABAPENTIN 300MG [Concomitant]
     Active Substance: GABAPENTIN
  13. LEVOTHYROXINE 25MCG [Concomitant]
     Active Substance: LEVOTHYROXINE
  14. IPRATROPIUM/ALBUTEROL INHALATION SOLUTION [Concomitant]
  15. PERFOROMIST 20MCG INHALTION SOLUTION [Concomitant]

REACTIONS (1)
  - Death [None]

NARRATIVE: CASE EVENT DATE: 20210521
